FAERS Safety Report 5878249-0 (Version None)
Quarter: 2008Q3

REPORT INFORMATION
  Report Type: 
  Country: None (occurrence: None)
  Receive Date: 20080911
  Receipt Date: 20080828
  Transmission Date: 20090109
  Serious: Yes (Hospitalization)
  Sender: FDA-Public Use
  Company Number: US-ELI_LILLY_AND_COMPANY-US200808006227

PATIENT
  Sex: Female

DRUGS (4)
  1. FORTEO [Suspect]
     Dates: start: 20070701, end: 20080701
  2. PREDNISONE TAB [Concomitant]
     Dosage: 10 MG, UNK
  3. METHOTREXATE [Concomitant]
     Indication: TEMPORAL ARTERITIS
  4. REGLAN [Concomitant]

REACTIONS (6)
  - DIVERTICULITIS [None]
  - DIZZINESS [None]
  - FISTULA [None]
  - GAIT DISTURBANCE [None]
  - MEMORY IMPAIRMENT [None]
  - VAGINAL INFECTION [None]
